FAERS Safety Report 19593054 (Version 20)
Quarter: 2021Q4

REPORT INFORMATION
  Report Type: Report from Study
  Country: TW (occurrence: None)
  Receive Date: 20210722
  Receipt Date: 20211201
  Transmission Date: 20220303
  Serious: Yes (Hospitalization)
  Sender: FDA-Public Use
  Company Number: TW-ROCHE-2857192

PATIENT
  Age: 65 Year
  Sex: Male
  Weight: 53 kg

DRUGS (45)
  1. INVESTIGATIONAL PRODUCT [Suspect]
     Active Substance: INVESTIGATIONAL PRODUCT
     Indication: Acute myeloid leukaemia refractory
     Dosage: START AND END DATE OF MOST RECENT DOSE (0.62 MG ) OF STUDY DRUG PRIOR TO AE/SAE 22-JUN-2021 1:40 PM
     Route: 042
     Dates: start: 20210622
  2. TOCILIZUMAB [Suspect]
     Active Substance: TOCILIZUMAB
     Indication: Acute myeloid leukaemia refractory
     Dosage: ON SAME DATE HE RECEIVED MOST RECENT DOSE OF TOCILIZUMAB AT 11.28PM TILL 01/JUL/2021 12:28 AM.
     Route: 042
     Dates: start: 20210630
  3. FEBUXOSTAT [Concomitant]
     Active Substance: FEBUXOSTAT
     Route: 048
     Dates: start: 20210622, end: 20210628
  4. METHYLPREDNISOLONE SODIUM SUCCINATE [Concomitant]
     Active Substance: METHYLPREDNISOLONE SODIUM SUCCINATE
     Route: 042
     Dates: start: 20210622, end: 20210622
  5. METHYLPREDNISOLONE SODIUM SUCCINATE [Concomitant]
     Active Substance: METHYLPREDNISOLONE SODIUM SUCCINATE
     Route: 042
     Dates: start: 20210701, end: 20210701
  6. METHYLPREDNISOLONE SODIUM SUCCINATE [Concomitant]
     Active Substance: METHYLPREDNISOLONE SODIUM SUCCINATE
     Route: 042
     Dates: start: 20210702, end: 20210702
  7. FUSIDIC ACID [Concomitant]
     Active Substance: FUSIDIC ACID
     Indication: Conjunctivitis
     Dosage: 1 TUBE
     Route: 047
     Dates: start: 20210616
  8. DIPHENHYDRAMINE HYDROCHLORIDE [Concomitant]
     Active Substance: DIPHENHYDRAMINE HYDROCHLORIDE
     Indication: Prophylaxis
     Route: 042
     Dates: start: 20210622, end: 20210622
  9. DIPHENHYDRAMINE HYDROCHLORIDE [Concomitant]
     Active Substance: DIPHENHYDRAMINE HYDROCHLORIDE
     Route: 042
     Dates: start: 20210630, end: 20210630
  10. DIPHENHYDRAMINE HYDROCHLORIDE [Concomitant]
     Active Substance: DIPHENHYDRAMINE HYDROCHLORIDE
     Route: 042
     Dates: start: 20210621, end: 20210621
  11. DIPHENHYDRAMINE HYDROCHLORIDE [Concomitant]
     Active Substance: DIPHENHYDRAMINE HYDROCHLORIDE
     Route: 042
     Dates: start: 20210713, end: 20210713
  12. DIPHENHYDRAMINE HYDROCHLORIDE [Concomitant]
     Active Substance: DIPHENHYDRAMINE HYDROCHLORIDE
     Route: 042
     Dates: start: 20210803, end: 20210803
  13. COTRIMOXAZOLE [Concomitant]
     Active Substance: SULFAMETHOXAZOLE\TRIMETHOPRIM
     Indication: Prophylaxis
     Dosage: ORALLY DISINTEGRATING TABLET
     Route: 048
     Dates: start: 20210427
  14. TENOFOVIR ALAFENAMIDE [Concomitant]
     Active Substance: TENOFOVIR ALAFENAMIDE
     Indication: Hepatitis B
     Route: 048
     Dates: start: 20210424
  15. AMLODIPINE BESYLATE [Concomitant]
     Active Substance: AMLODIPINE BESYLATE
     Indication: Hypertension
     Dosage: ORALLY DISINTEGRATING TABLET
     Route: 048
     Dates: start: 20210427
  16. MAGNESIUM OXIDE [Concomitant]
     Active Substance: MAGNESIUM OXIDE
     Indication: Prophylaxis
     Route: 048
     Dates: start: 20210427
  17. FAMOTIDINE [Concomitant]
     Active Substance: FAMOTIDINE
     Indication: Prophylaxis
     Route: 048
     Dates: start: 20210427, end: 20210623
  18. HUMAN RED BLOOD CELL [Concomitant]
     Active Substance: HUMAN RED BLOOD CELL
     Dates: start: 20210719
  19. HUMAN RED BLOOD CELL [Concomitant]
     Active Substance: HUMAN RED BLOOD CELL
     Dates: start: 20210702
  20. HUMAN RED BLOOD CELL [Concomitant]
     Active Substance: HUMAN RED BLOOD CELL
     Dates: start: 20210710
  21. HUMAN RED BLOOD CELL [Concomitant]
     Active Substance: HUMAN RED BLOOD CELL
     Dates: start: 20210624
  22. HUMAN RED BLOOD CELL [Concomitant]
     Active Substance: HUMAN RED BLOOD CELL
     Dates: start: 20210804
  23. HUMAN RED BLOOD CELL [Concomitant]
     Active Substance: HUMAN RED BLOOD CELL
     Dates: start: 20210805
  24. HUMAN RED BLOOD CELL [Concomitant]
     Active Substance: HUMAN RED BLOOD CELL
     Dates: start: 20210825
  25. POTASSIUM CHLORIDE [Concomitant]
     Active Substance: POTASSIUM CHLORIDE
     Indication: Hypokalaemia
     Route: 042
     Dates: start: 20210627, end: 20210627
  26. MAGNESIUM SULFATE [Concomitant]
     Active Substance: MAGNESIUM SULFATE
     Indication: Hypomagnesaemia
     Route: 042
     Dates: start: 20210627, end: 20210627
  27. MAGNESIUM SULFATE [Concomitant]
     Active Substance: MAGNESIUM SULFATE
     Route: 042
     Dates: start: 20210629, end: 20210629
  28. MAGNESIUM SULFATE [Concomitant]
     Active Substance: MAGNESIUM SULFATE
     Route: 042
     Dates: start: 20210701, end: 20210701
  29. MAGNESIUM SULFATE [Concomitant]
     Active Substance: MAGNESIUM SULFATE
     Route: 042
     Dates: start: 20210723, end: 20210723
  30. MAGNESIUM SULFATE [Concomitant]
     Active Substance: MAGNESIUM SULFATE
     Route: 042
     Dates: start: 20210709, end: 20210723
  31. MAGNESIUM SULFATE [Concomitant]
     Active Substance: MAGNESIUM SULFATE
     Route: 041
     Dates: start: 20210719, end: 20210719
  32. MAGNESIUM SULFATE [Concomitant]
     Active Substance: MAGNESIUM SULFATE
     Route: 041
     Dates: start: 20210723, end: 20210723
  33. IMIPRAMINE HYDROCHLORIDE [Concomitant]
     Active Substance: IMIPRAMINE HYDROCHLORIDE
     Indication: Oral herpes
     Route: 048
     Dates: start: 20210727, end: 20210730
  34. HYPROMELLOSES [Concomitant]
     Active Substance: HYPROMELLOSES
     Indication: Conjunctivitis
     Route: 047
     Dates: start: 20210629
  35. LIDOCAINE HYDROCHLORIDE [Concomitant]
     Active Substance: LIDOCAINE HYDROCHLORIDE
     Indication: Mouth ulceration
     Dates: start: 20210709
  36. TRIAMCINOLONE ACETONIDE [Concomitant]
     Active Substance: TRIAMCINOLONE ACETONIDE
     Indication: Mouth ulceration
     Route: 061
     Dates: start: 20210708
  37. VALACYCLOVIR HYDROCHLORIDE [Concomitant]
     Active Substance: VALACYCLOVIR HYDROCHLORIDE
     Indication: Herpes virus infection
     Route: 048
     Dates: start: 20210804
  38. VALACYCLOVIR HYDROCHLORIDE [Concomitant]
     Active Substance: VALACYCLOVIR HYDROCHLORIDE
     Route: 048
     Dates: start: 20210726, end: 20210804
  39. DEFERASIROX [Concomitant]
     Active Substance: DEFERASIROX
     Route: 048
     Dates: start: 20210810
  40. DEFERASIROX [Concomitant]
     Active Substance: DEFERASIROX
     Route: 048
     Dates: start: 20210728, end: 20210809
  41. PREGABALIN [Concomitant]
     Active Substance: PREGABALIN
     Indication: Herpes virus infection
     Route: 048
     Dates: start: 20210809, end: 20210824
  42. PREGABALIN [Concomitant]
     Active Substance: PREGABALIN
     Route: 048
     Dates: start: 20210730, end: 20210730
  43. PREGABALIN [Concomitant]
     Active Substance: PREGABALIN
     Route: 048
     Dates: start: 20210809, end: 20210824
  44. SULFAMETHOXAZOLE [Concomitant]
     Active Substance: SULFAMETHOXAZOLE
     Indication: Conjunctivitis
     Route: 047
     Dates: start: 20210506, end: 20211020
  45. ESOMEPRAZOLE MAGNESIUM [Concomitant]
     Active Substance: ESOMEPRAZOLE MAGNESIUM
     Route: 048
     Dates: start: 20210519

REACTIONS (1)
  - Cytokine release syndrome [Recovered/Resolved]

NARRATIVE: CASE EVENT DATE: 20210622
